FAERS Safety Report 7040554-2 (Version None)
Quarter: 2010Q4

REPORT INFORMATION
  Report Type: 
  Country: None (occurrence: None)
  Receive Date: 20101006
  Receipt Date: 20100921
  Transmission Date: 20110411
  Serious: Yes (Hospitalization)
  Sender: FDA-Public Use
  Company Number: C-10-0213-W

PATIENT
  Age: 67 Year
  Sex: Female
  Weight: 71 kg

DRUGS (10)
  1. METOPROLOL 50MG EXTENDED RELEASE TABLETS [Suspect]
     Indication: HYPERTENSION
     Dosage: ONE DAILY/ORAL
     Route: 048
     Dates: start: 20100917, end: 20100919
  2. ATIVAN [Concomitant]
  3. CALCIUM [Concomitant]
  4. VITAMIN D [Concomitant]
  5. MULTI-VITAMINS [Concomitant]
  6. ZESTRIL [Concomitant]
  7. MAGNESIUM OXIDE [Concomitant]
  8. ZANTAC [Concomitant]
  9. ACTONEL [Concomitant]
  10. AUGMENTIN '125' [Concomitant]

REACTIONS (2)
  - DYSPNOEA [None]
  - PALPITATIONS [None]
